FAERS Safety Report 5642691-3 (Version None)
Quarter: 2008Q1

REPORT INFORMATION
  Report Type: 
  Country: None (occurrence: None)
  Receive Date: 20080228
  Receipt Date: 20080222
  Transmission Date: 20080703
  Serious: Yes (Hospitalization)
  Sender: FDA-Public Use
  Company Number: JP-BAYER-200810263BYL

PATIENT

DRUGS (2)
  1. ASPIRIN [Suspect]
     Route: 048
  2. STEROID [Concomitant]
     Route: 065

REACTIONS (1)
  - EXTRADURAL HAEMATOMA [None]
